FAERS Safety Report 13599014 (Version 1)
Quarter: 2017Q2

REPORT INFORMATION
  Report Type: Spontaneous
  Country: US (occurrence: US)
  Receive Date: 20170531
  Receipt Date: 20170531
  Transmission Date: 20170830
  Serious: Yes (Life-Threatening, Other)
  Sender: FDA-Public Use
  Company Number: US-PFIZER INC-2017234549

PATIENT
  Age: 15 Year
  Sex: Female

DRUGS (5)
  1. PRISTIQ EXTENDED-RELEASE [Suspect]
     Active Substance: DESVENLAFAXINE SUCCINATE
     Dosage: INCREASED THE PATIENTS DOSAGE ON 01NOV2016 TO 125MG
     Dates: start: 20161101, end: 20161107
  2. PRISTIQ EXTENDED-RELEASE [Suspect]
     Active Substance: DESVENLAFAXINE SUCCINATE
     Dosage: INCREASED DOSAGE ON 08NOV2016 TO 150MG
     Dates: start: 20161108, end: 20161114
  3. PRISTIQ EXTENDED-RELEASE [Suspect]
     Active Substance: DESVENLAFAXINE SUCCINATE
     Indication: DEPRESSION
     Dosage: INCREASED IT TO 100MG
     Dates: start: 201610
  4. PRISTIQ EXTENDED-RELEASE [Suspect]
     Active Substance: DESVENLAFAXINE SUCCINATE
     Dosage: INCREASED DOSAGE ON 15NOV2016 TO 175MG
     Dates: start: 20161115, end: 201612
  5. PRISTIQ EXTENDED-RELEASE [Suspect]
     Active Substance: DESVENLAFAXINE SUCCINATE
     Indication: ANXIETY
     Dosage: PRESCRIBED HER 50MG
     Dates: start: 2016

REACTIONS (5)
  - Hypopnoea [Recovered/Resolved]
  - Pain [Unknown]
  - Drug administered to patient of inappropriate age [Not Recovered/Not Resolved]
  - Serotonin syndrome [Recovered/Resolved]
  - Drug prescribing error [Unknown]

NARRATIVE: CASE EVENT DATE: 2016
